FAERS Safety Report 4352398-0 (Version None)
Quarter: 2004Q2

REPORT INFORMATION
  Report Type: 
  Country: None (occurrence: None)
  Receive Date: 20040504
  Receipt Date: 20040329
  Transmission Date: 20050107
  Serious: Yes (Other)
  Sender: FDA-Public Use
  Company Number: 200411461JP

PATIENT
  Age: 74 Year
  Sex: Female
  Weight: 46 kg

DRUGS (6)
  1. KETEK [Suspect]
     Indication: ASTHMA
     Route: 048
     Dates: start: 20040322, end: 20040322
  2. THEO-DUR [Concomitant]
     Indication: BRONCHITIS
     Route: 048
     Dates: start: 20040319, end: 20040322
  3. MEDICON [Concomitant]
     Indication: BRONCHITIS
     Route: 048
     Dates: start: 20040319, end: 20040322
  4. MUCOSOLATE [Concomitant]
     Indication: BRONCHITIS
     Route: 048
     Dates: start: 20040319, end: 20040322
  5. AMINOPHYLLINE [Concomitant]
     Indication: ASTHMA
     Route: 041
     Dates: start: 20040322, end: 20040322
  6. SOLDEM 3A [Concomitant]
     Route: 041
     Dates: start: 20040322, end: 20040322

REACTIONS (5)
  - ASTHMA [None]
  - ATRIAL FIBRILLATION [None]
  - CONVULSION [None]
  - PALPITATIONS [None]
  - STRIDOR [None]
